FAERS Safety Report 12816220 (Version 1)
Quarter: 2016Q4

REPORT INFORMATION
  Report Type: Spontaneous
  Country: NO (occurrence: NO)
  Receive Date: 20161006
  Receipt Date: 20161006
  Transmission Date: 20170207
  Serious: No
  Sender: FDA-Public Use
  Company Number: NO-NOVEN PHARMACEUTICALS, INC.-NO2015000873

PATIENT
  Sex: Female

DRUGS (2)
  1. ESTRADIOL/NORETHISTERONE ACETATE [Suspect]
     Active Substance: ESTRADIOL\NORETHINDRONE ACETATE
     Indication: HORMONE THERAPY
     Dosage: UNK, 2/WK
     Route: 062
  2. ESTRADIOL/NORETHISTERONE ACETATE [Suspect]
     Active Substance: ESTRADIOL\NORETHINDRONE ACETATE
     Dosage: HALF PATCH, 2/WK
     Route: 062

REACTIONS (2)
  - Wrong technique in product usage process [Unknown]
  - Off label use [Unknown]
